FAERS Safety Report 4705219-8 (Version None)
Quarter: 2005Q2

REPORT INFORMATION
  Report Type: 
  Country: None (occurrence: None)
  Receive Date: 20050630
  Receipt Date: 20050630
  Transmission Date: 20051028
  Serious: Yes (Hospitalization)
  Sender: FDA-Public Use
  Company Number: None

PATIENT
  Age: 56 Year
  Sex: Male
  Weight: 121.7 kg

DRUGS (1)
  1. TRAVOPROST [Suspect]
     Indication: GLAUCOMA
     Dosage: 1 DROP IN BOTH EYES Q HS 0.004%
     Dates: start: 20050308, end: 20050310

REACTIONS (3)
  - EYE PAIN [None]
  - LACRIMATION INCREASED [None]
  - PHOTOPHOBIA [None]
